FAERS Safety Report 5449299-3 (Version None)
Quarter: 2007Q3

REPORT INFORMATION
  Report Type: 
  Country: None (occurrence: None)
  Receive Date: 20070907
  Receipt Date: 20070828
  Transmission Date: 20080115
  Serious: Yes (Hospitalization)
  Sender: FDA-Public Use
  Company Number: GXKR2007ES07428

PATIENT
  Age: 62 Year
  Sex: Female

DRUGS (1)
  1. AMOXICILLIN [Suspect]
     Indication: PYREXIA

REACTIONS (5)
  - CHORIOMENINGITIS LYMPHOCYTIC [None]
  - CSF TEST ABNORMAL [None]
  - EPSTEIN-BARR VIRUS TEST POSITIVE [None]
  - LINEAR IGA DISEASE [None]
  - TRANSAMINASES INCREASED [None]
